FAERS Safety Report 6942901-6 (Version None)
Quarter: 2010Q3

REPORT INFORMATION
  Report Type: 
  Country: None (occurrence: None)
  Receive Date: 20100826
  Receipt Date: 20100818
  Transmission Date: 20110219
  Serious: Yes (Other)
  Sender: FDA-Public Use
  Company Number: BR-ROCHE-722678

PATIENT
  Sex: Female
  Weight: 65 kg

DRUGS (4)
  1. ROACUTAN [Suspect]
     Indication: ACNE
     Route: 048
     Dates: start: 20100723
  2. TAMIFLU [Suspect]
     Indication: H1N1 INFLUENZA
     Route: 048
     Dates: start: 20100818
  3. VONAU [Concomitant]
     Indication: NAUSEA
     Route: 048
     Dates: start: 20100818
  4. DIPYRONE [Concomitant]
     Dosage: FREQUENCY SOMETIMES
     Dates: start: 20100814

REACTIONS (2)
  - H1N1 INFLUENZA [None]
  - NAUSEA [None]
